FAERS Safety Report 23689836 (Version 4)
Quarter: 2024Q2

REPORT INFORMATION
  Report Type: Report from Study
  Country: AR (occurrence: AR)
  Receive Date: 20240331
  Receipt Date: 20240425
  Transmission Date: 20240716
  Serious: Yes (Life-Threatening, Hospitalization)
  Sender: FDA-Public Use
  Company Number: AR-002147023-NVSC2024AR012896

PATIENT
  Age: 69 Year
  Sex: Male

DRUGS (4)
  1. COSENTYX [Suspect]
     Active Substance: SECUKINUMAB
     Indication: Psoriasis
     Dosage: UNK
     Route: 065
     Dates: start: 20210505
  2. COSENTYX [Suspect]
     Active Substance: SECUKINUMAB
     Dosage: UNK
     Route: 065
     Dates: start: 20210805
  3. COSENTYX [Suspect]
     Active Substance: SECUKINUMAB
     Dosage: UNK
     Route: 065
     Dates: start: 20240320
  4. METHOTREXATE [Concomitant]
     Active Substance: METHOTREXATE
     Indication: Product used for unknown indication
     Dosage: UNK (RECEIVED 20 YEARS AGO)
     Route: 065

REACTIONS (18)
  - Dermatitis exfoliative generalised [Recovering/Resolving]
  - Skin injury [Unknown]
  - Dehydration [Unknown]
  - Psoriasis [Not Recovered/Not Resolved]
  - Pain in extremity [Unknown]
  - Rash vesicular [Unknown]
  - Skin disorder [Unknown]
  - Skin exfoliation [Unknown]
  - Superinfection [Unknown]
  - Erythrodermic psoriasis [Unknown]
  - Arthralgia [Unknown]
  - Haematocrit decreased [Unknown]
  - Pleural effusion [Unknown]
  - Haemorrhoids [Unknown]
  - Erythema [Unknown]
  - Muscle atrophy [Unknown]
  - Muscular weakness [Unknown]
  - Loss of therapeutic response [Unknown]

NARRATIVE: CASE EVENT DATE: 20240115
